FAERS Safety Report 11083517 (Version 2)
Quarter: 2015Q3

REPORT INFORMATION
  Report Type: Spontaneous
  Country: JP (occurrence: JP)
  Receive Date: 20150501
  Receipt Date: 20150914
  Transmission Date: 20151125
  Serious: No
  Sender: FDA-Public Use
  Company Number: JP-PFIZER INC-2015143323

PATIENT
  Age: 85 Year
  Sex: Female

DRUGS (2)
  1. TOVIAZ [Suspect]
     Active Substance: FESOTERODINE FUMARATE
     Indication: HYPERTONIC BLADDER
     Dosage: 4 MG, 1X/DAY
     Route: 048
     Dates: start: 20150420, end: 20150421
  2. TOMIRON [Suspect]
     Active Substance: CEFTERAM PIVOXIL
     Indication: CYSTITIS
     Dosage: 300 MG, 3X/DAY
     Route: 048
     Dates: start: 20150413, end: 20150419

REACTIONS (1)
  - Face oedema [Recovered/Resolved]

NARRATIVE: CASE EVENT DATE: 20150420
